FAERS Safety Report 26000820 (Version 1)
Quarter: 2025Q4

REPORT INFORMATION
  Report Type: Spontaneous
  Country: US (occurrence: US)
  Receive Date: 20251105
  Receipt Date: 20251105
  Transmission Date: 20260118
  Serious: No
  Sender: ANI
  Company Number: US-ANIPHARMA-2025-US-043396

PATIENT
  Sex: Female

DRUGS (2)
  1. CORTICOTROPIN [Suspect]
     Active Substance: CORTICOTROPIN
     Indication: Psoriatic arthropathy
     Dosage: 80 UNITS SQ 2 TIMES A WEEK; THEN, REDUCED TO AS NEEDED
     Route: 058
     Dates: start: 20250724
  2. UNSPECIFIED INGREDIENT [Concomitant]
     Active Substance: UNSPECIFIED INGREDIENT

REACTIONS (5)
  - Abdominal distension [Unknown]
  - Peripheral swelling [Unknown]
  - Fluid retention [Unknown]
  - Blood pressure increased [Unknown]
  - Contraindicated product administered [Not Recovered/Not Resolved]

NARRATIVE: CASE EVENT DATE: 20250724
